FAERS Safety Report 6785652-3 (Version None)
Quarter: 2010Q2

REPORT INFORMATION
  Report Type: 
  Country: None (occurrence: None)
  Receive Date: 20100623
  Receipt Date: 20100617
  Transmission Date: 20101027
  Serious: Yes (Hospitalization)
  Sender: FDA-Public Use
  Company Number: US-BAYER-201023896NA

PATIENT
  Age: 42 Year
  Sex: Female

DRUGS (3)
  1. BETASERON [Suspect]
     Indication: MULTIPLE SCLEROSIS
     Route: 058
     Dates: start: 19850101, end: 20100101
  2. REBIF [Concomitant]
     Dates: start: 20100501
  3. PROZAC [Concomitant]

REACTIONS (4)
  - BACK PAIN [None]
  - INJECTION SITE CELLULITIS [None]
  - INJECTION SITE SCAR [None]
  - URINARY TRACT INFECTION [None]
